FAERS Safety Report 20768120 (Version 1)
Quarter: 2022Q2

REPORT INFORMATION
  Report Type: Report from Study
  Country: IN (occurrence: IN)
  Receive Date: 20220429
  Receipt Date: 20220429
  Transmission Date: 20220721
  Serious: Yes (Death)
  Sender: FDA-Public Use
  Company Number: IN-NOVARTISPH-PHHY2018IN078279

PATIENT
  Age: 65 Year
  Sex: Male

DRUGS (2)
  1. SACUBITRIL\VALSARTAN [Suspect]
     Active Substance: SACUBITRIL\VALSARTAN
     Indication: Cardiac failure chronic
     Dosage: 0.5 DF, BID (50 MG 1/2 BD)
     Route: 048
     Dates: start: 20180808
  2. SACUBITRIL\VALSARTAN [Suspect]
     Active Substance: SACUBITRIL\VALSARTAN
     Dosage: 0.5 DOSAGE FORM, BID
     Route: 048
     Dates: start: 20180814

REACTIONS (3)
  - Sudden death [Fatal]
  - Wrong technique in product usage process [Recovering/Resolving]
  - Prescribed underdose [Recovering/Resolving]

NARRATIVE: CASE EVENT DATE: 20180808
